FAERS Safety Report 11680391 (Version 2)
Quarter: 2015Q4

REPORT INFORMATION
  Report Type: Spontaneous
  Country: US (occurrence: US)
  Receive Date: 20151027
  Receipt Date: 20151104
  Transmission Date: 20160304
  Serious: No
  Sender: FDA-Public Use
  Company Number: US-ELI_LILLY_AND_COMPANY-US201007007688

PATIENT
  Age: 78 Year
  Sex: Female
  Weight: 49.89 kg

DRUGS (2)
  1. FORTEO [Suspect]
     Active Substance: TERIPARATIDE
     Dosage: 20 UG, DAILY (1/D)
     Dates: end: 201012
  2. FORTEO [Suspect]
     Active Substance: TERIPARATIDE
     Indication: OSTEOPOROSIS
     Dosage: 20 UG, DAILY (1/D)
     Route: 065
     Dates: start: 20100621

REACTIONS (11)
  - Pain in extremity [Unknown]
  - Hypoaesthesia [Recovered/Resolved]
  - Abdominal pain upper [Recovered/Resolved]
  - Arthralgia [Unknown]
  - Orthostatic hypotension [Unknown]
  - Pain [Recovered/Resolved]
  - Dizziness [Recovered/Resolved]
  - Myalgia [Not Recovered/Not Resolved]
  - Presyncope [Recovered/Resolved]
  - Bone pain [Unknown]
  - Fatigue [Unknown]

NARRATIVE: CASE EVENT DATE: 201010
